FAERS Safety Report 17224684 (Version 2)
Quarter: 2020Q1

REPORT INFORMATION
  Report Type: Spontaneous
  Country: IN (occurrence: IN)
  Receive Date: 20200102
  Receipt Date: 20200306
  Transmission Date: 20200409
  Serious: No
  Sender: FDA-Public Use
  Company Number: IN-PFIZER INC-2019514504

PATIENT
  Age: 75 Year
  Sex: Female

DRUGS (8)
  1. NEOGADINE [Concomitant]
     Dosage: 10 ML, 3X/DAY (10 ML THREE TIMES DAILY BEFORE MEALS)
  2. GALCAL [Concomitant]
     Dosage: 1 DF, 1X/DAY (1 TAB ONCE DAILY)
  3. ZOLEDRONIC ACID [Concomitant]
     Active Substance: ZOLEDRONIC ACID
     Dosage: 4 MG, MONTHLY
     Route: 042
  4. FLEXON [Concomitant]
     Active Substance: ACETAMINOPHEN\IBUPROFEN
     Indication: PAIN
     Dosage: 1 DF, UNK (1TAB SOS)
  5. PALBACE [Suspect]
     Active Substance: PALBOCICLIB
     Indication: BREAST CANCER METASTATIC
     Dosage: 125 MG, CYCLIC (125MG ONCE DAILY 3 WEEKS ON AND 1 WEEK OFF WITH FOOD)
     Route: 048
     Dates: start: 20190104
  6. VITAMIN D3 [Concomitant]
     Active Substance: CHOLECALCIFEROL
     Dosage: UNK (1 BOTTLE ONCE WEEKLY X 8 WEEKS)
  7. LETROZOLE. [Concomitant]
     Active Substance: LETROZOLE
     Dosage: 1 DF, DAILY (1 TAB ONCE DAILY)
  8. DOLO 650 [Concomitant]
     Indication: PAIN
     Dosage: UNK (650 MG SOS)

REACTIONS (3)
  - Osteosclerosis [Unknown]
  - Neoplasm progression [Unknown]
  - Blood creatinine increased [Unknown]

NARRATIVE: CASE EVENT DATE: 20190302
